FAERS Safety Report 23917734 (Version 1)
Quarter: 2024Q2

REPORT INFORMATION
  Report Type: Spontaneous
  Country: KR (occurrence: KR)
  Receive Date: 20240530
  Receipt Date: 20240530
  Transmission Date: 20240715
  Serious: Yes (Death)
  Sender: FDA-Public Use
  Company Number: KR-CHEPLA-2024006579

PATIENT
  Age: 41 Year
  Sex: Female

DRUGS (8)
  1. CLONAZEPAM [Suspect]
     Active Substance: CLONAZEPAM
  2. QUETIAPINE [Suspect]
     Active Substance: QUETIAPINE
  3. DESVENLAFAXINE [Suspect]
     Active Substance: DESVENLAFAXINE
  4. PAROXETINE [Suspect]
     Active Substance: PAROXETINE
  5. FLUNITRAZEPAM [Suspect]
     Active Substance: FLUNITRAZEPAM
  6. DIAZEPAM [Suspect]
     Active Substance: DIAZEPAM
  7. OXIRACETAM [Suspect]
     Active Substance: OXIRACETAM
  8. VALPROATE [Suspect]
     Active Substance: VALPROIC ACID

REACTIONS (1)
  - Completed suicide [Fatal]
